FAERS Safety Report 8445810-9 (Version None)
Quarter: 2012Q2

REPORT INFORMATION
  Report Type: 
  Country: None (occurrence: None)
  Receive Date: 20120323
  Receipt Date: 20120424
  Transmission Date: 20120825
  Serious: Yes (Hospitalization)
  Sender: FDA-Public Use
  Company Number: 20120423

PATIENT
  Sex: Female
  Weight: 90.6287 kg

DRUGS (15)
  1. MELATONIN [Concomitant]
  2. MAGNESIUM [Concomitant]
  3. STOOL SOFTENER [Concomitant]
  4. LOTRISONE [Concomitant]
  5. MIFEPRISTONE (MIFEPREX) [Suspect]
     Indication: CUSHING'S SYNDROME
     Dosage: 1200MG QD BY MOUTH
     Dates: start: 20081223
  6. CALCIUM [Concomitant]
  7. GABAPENTIN [Concomitant]
  8. ASPIRIN [Concomitant]
  9. SYNTHROID [Concomitant]
  10. GARLIC TABLET [Concomitant]
  11. POTASSIUM CITRATE [Concomitant]
  12. OXYCONTIN [Concomitant]
  13. OMEPRAZOLE [Concomitant]
  14. HUMATROPE [Concomitant]
  15. MULTIVITAMIN 1TAB [Concomitant]

REACTIONS (5)
  - FACIAL ASYMMETRY [None]
  - BASAL GANGLIA INFARCTION [None]
  - MUSCULAR WEAKNESS [None]
  - DYSGRAPHIA [None]
  - LEFT VENTRICULAR HYPERTROPHY [None]
